FAERS Safety Report 7017944-7 (Version None)
Quarter: 2010Q3

REPORT INFORMATION
  Report Type: 
  Country: None (occurrence: None)
  Receive Date: 20100922
  Receipt Date: 20100906
  Transmission Date: 20110219
  Serious: Yes (Hospitalization)
  Sender: FDA-Public Use
  Company Number: AE-2009-294

PATIENT
  Age: 14 Year
  Sex: Female

DRUGS (6)
  1. HYDROXYCHLOROQUINE SULFATE (HYDROXYCHLOROQUINE SULFATE) (HYDROXYCHLORO [Suspect]
  2. PREDNISOLONE [Suspect]
     Indication: SYSTEMIC LUPUS ERYTHEMATOSUS
     Dosage: 2MG/KG TAPARED TO 0.2 MG/KG OVER 6 MONTH, ORAL
     Route: 048
  3. METHYLPREDNISOLONE [Suspect]
     Dosage: IV USE, PULSES, INTRAVENOUS
     Route: 042
  4. MYCOPHENOLATE MEFETIL [Suspect]
  5. CYCLOPHOSPHAMIDE [Suspect]
  6. DEFLAZACORT [Concomitant]

REACTIONS (10)
  - AREFLEXIA [None]
  - BACK PAIN [None]
  - CUSHING'S SYNDROME [None]
  - EPIDURAL LIPOMATOSIS [None]
  - FAECAL INCONTINENCE [None]
  - LIPOMATOSIS [None]
  - PARAESTHESIA [None]
  - URINARY INCONTINENCE [None]
  - VOMITING [None]
  - WEIGHT INCREASED [None]
